FAERS Safety Report 10854601 (Version 1)
Quarter: 2015Q1

REPORT INFORMATION
  Report Type: Report from Study
  Country: IT (occurrence: None)
  Receive Date: 20150218
  Receipt Date: 20150218
  Transmission Date: 20150721
  Serious: Yes (Other)
  Sender: FDA-Public Use
  Company Number: 2015SA013964

PATIENT

DRUGS (3)
  1. CLOFARABINE [Suspect]
     Active Substance: CLOFARABINE
     Indication: ACUTE LEUKAEMIA
  2. DOXORUBICINE (DOXORUBICIN HYDROCHLORIDE) [Suspect]
     Active Substance: DOXORUBICIN HYDROCHLORIDE
     Indication: ACUTE LEUKAEMIA
  3. CYTARABINE (CYTARABINE) [Suspect]
     Active Substance: CYTARABINE
     Indication: ACUTE LEUKAEMIA

REACTIONS (2)
  - Sepsis [None]
  - Neutropenia [None]
